FAERS Safety Report 7518467-9 (Version None)
Quarter: 2011Q2

REPORT INFORMATION
  Report Type: 
  Country: None (occurrence: None)
  Receive Date: 20110601
  Receipt Date: 20110601
  Transmission Date: 20111010
  Serious: No
  Sender: FDA-Public Use
  Company Number: None

PATIENT
  Age: 44 Year
  Sex: Female
  Weight: 50.8029 kg

DRUGS (1)
  1. CLIMARA [Suspect]
     Indication: ARTIFICIAL MENOPAUSE
     Dosage: 0.05 MG/DAY WEEKLY TRANSDERMAL
     Route: 062
     Dates: start: 20110423, end: 20110530

REACTIONS (2)
  - ACNE [None]
  - ALOPECIA [None]
